FAERS Safety Report 8523560-8 (Version None)
Quarter: 2012Q3

REPORT INFORMATION
  Report Type: 
  Country: None (occurrence: None)
  Receive Date: 20120720
  Receipt Date: 20120711
  Transmission Date: 20120928
  Serious: Yes (Hospitalization)
  Sender: FDA-Public Use
  Company Number: DE-ABBOTT-12P-062-0955450-00

PATIENT
  Sex: Female
  Weight: 62 kg

DRUGS (4)
  1. ATACAND HCT [Concomitant]
     Indication: HYPERTENSION
     Dosage: 32/12.5 MG ONCE DAILY
     Route: 048
     Dates: start: 20070724
  2. FOLIC ACID [Concomitant]
     Indication: PRODUCT USED FOR UNKNOWN INDICATION
     Dosage: WEEKLY
     Route: 048
     Dates: start: 20110725
  3. METHOTREXATE SODIUM [Concomitant]
     Indication: RHEUMATOID ARTHRITIS
     Dosage: WEEKLY
     Route: 048
     Dates: start: 20040824
  4. HUMIRA [Suspect]
     Indication: RHEUMATOID ARTHRITIS
     Route: 058
     Dates: start: 20090930

REACTIONS (2)
  - SUDDEN HEARING LOSS [None]
  - TINNITUS [None]
